FAERS Safety Report 13627924 (Version 4)
Quarter: 2018Q1

REPORT INFORMATION
  Report Type: Report from Study
  Country: US (occurrence: US)
  Receive Date: 20170607
  Receipt Date: 20180124
  Transmission Date: 20180508
  Serious: No
  Sender: FDA-Public Use
  Company Number: PHEH2017US017252

PATIENT
  Sex: Female
  Weight: 49 kg

DRUGS (3)
  1. ILARIS [Suspect]
     Active Substance: CANAKINUMAB
     Dosage: UNK, EVERY 4 WEEKS
     Route: 065
     Dates: start: 20171218
  2. ILARIS [Suspect]
     Active Substance: CANAKINUMAB
     Indication: STILL^S DISEASE
     Dosage: 180 MG, UNK
     Route: 058
  3. ILARIS [Suspect]
     Active Substance: CANAKINUMAB
     Dosage: UNK  EVERY 4 WEEKS
     Route: 065
     Dates: start: 20171020

REACTIONS (4)
  - Pain in extremity [Unknown]
  - Inappropriate schedule of drug administration [Unknown]
  - Arthralgia [Recovering/Resolving]
  - Spinal pain [Unknown]
